FAERS Safety Report 23286430 (Version 3)
Quarter: 2024Q1

REPORT INFORMATION
  Report Type: Spontaneous
  Country: US (occurrence: US)
  Receive Date: 20231212
  Receipt Date: 20240206
  Transmission Date: 20240410
  Serious: Yes (Other)
  Sender: FDA-Public Use
  Company Number: US-BRISTOL-MYERS SQUIBB COMPANY-2023-179084

PATIENT
  Age: 82 Year
  Sex: Male

DRUGS (1)
  1. LENALIDOMIDE [Suspect]
     Active Substance: LENALIDOMIDE
     Indication: Plasma cell myeloma
     Dosage: FREQUENCY: TAKE 1 CAPSULE BY MOUTH ONCE DAILY/TAKE 1 CAPSULE BY MOUTH EVERY DAY
     Route: 048
     Dates: start: 20230519

REACTIONS (3)
  - Full blood count decreased [Unknown]
  - Chest pain [Recovering/Resolving]
  - Anaemia [Recovering/Resolving]
